FAERS Safety Report 9264739 (Version 1)
Quarter: 2013Q2

REPORT INFORMATION
  Report Type: Spontaneous
  Country: US (occurrence: None)
  Receive Date: 20130429
  Receipt Date: 20130429
  Transmission Date: 20140414
  Serious: Yes (Other)
  Sender: FDA-Public Use
  Company Number: None

PATIENT
  Age: 69 Year
  Sex: Female

DRUGS (13)
  1. LEVOTHYROXINE SODIUM [Suspect]
     Dosage: UNK
  2. AZITHROMYCIN [Suspect]
     Dosage: UNK
  3. OXYCODONE HYDROCHLORIDE [Suspect]
     Dosage: UNK
  4. CLOPIDOGREL [Suspect]
  5. METHOCARBAMOL [Suspect]
     Dosage: UNK
  6. CHOLECALCIFEROL [Suspect]
     Dosage: UNK
  7. SPIRIVA [Suspect]
     Dosage: UNK
  8. ENOXAPARIN [Suspect]
     Dosage: UNK
  9. WARFARIN (WARFARIN) [Suspect]
     Dosage: UNK
  10. HYDROCODONE (HYDROCODONE) [Suspect]
     Dosage: UNK
  11. ALBUTEROL [Suspect]
     Dosage: UNK
  12. CLONAZEPAM (CLONAZEPAM) (CLONAZEPAM) [Suspect]
     Dosage: UNK
  13. LACTULOSE (LACTULOSE) [Suspect]
     Dosage: UNK

REACTIONS (3)
  - Hypoacusis [None]
  - Malaise [None]
  - Pain [None]
